FAERS Safety Report 6730630-3 (Version None)
Quarter: 2010Q2

REPORT INFORMATION
  Report Type: 
  Country: None (occurrence: None)
  Receive Date: 20100518
  Receipt Date: 20100506
  Transmission Date: 20101027
  Serious: Yes (Life-Threatening)
  Sender: FDA-Public Use
  Company Number: FR-PFIZER INC-2010057832

PATIENT
  Age: 79 Year
  Sex: Female

DRUGS (10)
  1. DILTIAZEM HCL [Suspect]
     Indication: PULMONARY ARTERIAL HYPERTENSION
     Dosage: 200 MG, DAILY
     Route: 048
     Dates: start: 20100304, end: 20100308
  2. SILDENAFIL CITRATE [Suspect]
     Indication: PULMONARY HYPERTENSION
     Dosage: 5 MG, 3X/DAY
     Route: 048
     Dates: start: 20100303, end: 20100305
  3. SILDENAFIL CITRATE [Suspect]
     Dosage: 20 MG, 3X/DAY
     Route: 048
  4. FLECAINIDE ACETATE [Suspect]
     Indication: PULMONARY ARTERIAL HYPERTENSION
     Dosage: 150 MG, DAILY
     Route: 048
     Dates: start: 20100304, end: 20100308
  5. LASIX [Concomitant]
     Dosage: UNK
     Dates: start: 20081101
  6. CHRONADALATE [Concomitant]
     Dosage: UNK
     Dates: start: 20061001, end: 20100304
  7. TRACLEER [Concomitant]
     Dosage: UNK
     Dates: start: 20070613, end: 20100308
  8. DELURSAN [Concomitant]
     Dosage: UNK
     Dates: start: 20090601, end: 20100308
  9. IMUREL [Concomitant]
     Dosage: UNK
     Dates: start: 20090601, end: 20100308
  10. CORTANCYL [Concomitant]
     Dosage: UNK
     Dates: start: 20090601, end: 20100308

REACTIONS (2)
  - INCORRECT DOSE ADMINISTERED [None]
  - RENAL FAILURE ACUTE [None]
